FAERS Safety Report 6354924-9 (Version None)
Quarter: 2009Q3

REPORT INFORMATION
  Report Type: 
  Country: None (occurrence: None)
  Receive Date: 20090914
  Receipt Date: 20090902
  Transmission Date: 20100115
  Serious: Yes (Other)
  Sender: FDA-Public Use
  Company Number: US-AVENTIS-200916775US

PATIENT
  Sex: Male

DRUGS (2)
  1. LANTUS [Suspect]
     Route: 058
     Dates: start: 20090701
  2. LANTUS [Suspect]
     Route: 058
     Dates: end: 20090701

REACTIONS (7)
  - ALOPECIA [None]
  - BLOOD GLUCOSE INCREASED [None]
  - FACE INJURY [None]
  - FALL [None]
  - LOCALISED INFECTION [None]
  - LOSS OF CONSCIOUSNESS [None]
  - ONYCHOMADESIS [None]
